FAERS Safety Report 9292508 (Version 1)
Quarter: 2013Q2

REPORT INFORMATION
  Report Type: Spontaneous
  Country: US (occurrence: US)
  Receive Date: 20130516
  Receipt Date: 20130516
  Transmission Date: 20140414
  Serious: No
  Sender: FDA-Public Use
  Company Number: US-009507513-1305USA000976

PATIENT
  Sex: Male

DRUGS (2)
  1. CORICIDIN HCP MAXIMUM STRENGTH FLU [Suspect]
     Indication: PRODUCT USED FOR UNKNOWN INDICATION
     Dosage: UNK, UNKNOWN
     Route: 048
  2. CORICIDIN HCP MAXIMUM STRENGTH FLU [Suspect]
     Dosage: 4 DF, ONCE
     Route: 048

REACTIONS (2)
  - Drug ineffective [Unknown]
  - Inappropriate schedule of drug administration [Unknown]
